FAERS Safety Report 8480903-1 (Version None)
Quarter: 2012Q2

REPORT INFORMATION
  Report Type: 
  Country: None (occurrence: None)
  Receive Date: 20120622
  Receipt Date: 20120612
  Transmission Date: 20120825
  Serious: No
  Sender: FDA-Public Use
  Company Number: 2012SP024360

PATIENT
  Age: 30 Year
  Sex: Female

DRUGS (1)
  1. SYCREST (ASENAPINE / 05706901/ ) (5 MG) [Suspect]
     Indication: BIPOLAR DISORDER
     Dosage: 5 MG;BID;SL
     Route: 060

REACTIONS (1)
  - PRURITUS [None]
